FAERS Safety Report 5252077-1 (Version None)
Quarter: 2007Q1

REPORT INFORMATION
  Report Type: 
  Country: None (occurrence: None)
  Receive Date: 20070227
  Receipt Date: 20061012
  Transmission Date: 20070707
  Serious: Yes (Other)
  Sender: FDA-Public Use
  Company Number: DSA_29396_2007

PATIENT
  Age: 83 Year
  Sex: Female

DRUGS (3)
  1. DILTIAZEM [Suspect]
     Indication: ANGINA PECTORIS
     Dosage: 60 MG TID PO
     Route: 048
     Dates: start: 20060927, end: 20060928
  2. DILTIAZEM [Suspect]
     Indication: HYPERTENSION
     Dosage: 60 MG TID PO
     Route: 048
     Dates: start: 20060927, end: 20060928
  3. LOVASTATIN [Concomitant]

REACTIONS (1)
  - EYELID PTOSIS [None]
